FAERS Safety Report 8875672 (Version 3)
Quarter: 2022Q4

REPORT INFORMATION
  Report Type: Report from Study
  Country: US (occurrence: None)
  Receive Date: 20121030
  Receipt Date: 20221107
  Transmission Date: 20230113
  Serious: Yes (Hospitalization)
  Sender: FDA-Public Use
  Company Number: US-ROCHE-1078829

PATIENT
  Age: 47 Year
  Sex: Female
  Weight: 82 kg

DRUGS (31)
  1. BEVACIZUMAB [Suspect]
     Active Substance: BEVACIZUMAB
     Indication: Ovarian epithelial cancer
     Dosage: OVER 30-90 MINUTES ON DAY 1 OF CYCLES 2+?LAST ADMIN DATE: 21/MAR/2012
     Route: 042
     Dates: start: 20120321
  2. PACLITAXEL [Suspect]
     Active Substance: PACLITAXEL
     Indication: Ovarian epithelial cancer
     Dosage: OVER 1 HR ON DAYS 1,8 AND 15(CYCLES 1-6)
     Route: 042
     Dates: start: 20120301
  3. CARBOPLATIN [Suspect]
     Active Substance: CARBOPLATIN
     Indication: Ovarian epithelial cancer
     Dosage: AUV 6 ON DAY 1 (CYCLES 1-6)
     Route: 042
     Dates: start: 20120301
  4. ALOXI [Concomitant]
     Active Substance: PALONOSETRON HYDROCHLORIDE
  5. APRESOLINE HYDROCHLORIDE [Concomitant]
     Active Substance: HYDRALAZINE HYDROCHLORIDE
  6. ATIVAN [Concomitant]
     Active Substance: LORAZEPAM
  7. CEPHALEXIN [Concomitant]
     Active Substance: CEPHALEXIN
  8. CITROMA [Concomitant]
     Active Substance: MAGNESIUM CITRATE
  9. DEXAMETHASONE [Concomitant]
     Active Substance: DEXAMETHASONE
  10. DILAUDID [Concomitant]
     Active Substance: HYDROMORPHONE HYDROCHLORIDE
  11. DIPHENHYDRAMINE [Concomitant]
     Active Substance: DIPHENHYDRAMINE
  12. DORIPENEM [Concomitant]
     Active Substance: DORIPENEM
  13. ERTAPENEM [Concomitant]
     Active Substance: ERTAPENEM
  14. FAMOTIDINE [Concomitant]
     Active Substance: FAMOTIDINE
  15. LASIX [Concomitant]
     Active Substance: FUROSEMIDE
  16. LISINOPRIL [Concomitant]
     Active Substance: LISINOPRIL
  17. LOVENOX [Concomitant]
     Active Substance: ENOXAPARIN SODIUM
  18. MAGNESIUM SULFATE [Concomitant]
     Active Substance: MAGNESIUM SULFATE
  19. MICAFUNGIN [Concomitant]
     Active Substance: MICAFUNGIN
  20. MORPHINE [Concomitant]
     Active Substance: MORPHINE
  21. MYCAMINE [Concomitant]
     Active Substance: MICAFUNGIN SODIUM
  22. ONDANSETRON [Concomitant]
     Active Substance: ONDANSETRON
  23. PEPCID [Concomitant]
     Active Substance: FAMOTIDINE
  24. POTASSIUM CHLORIDE [Concomitant]
     Active Substance: POTASSIUM CHLORIDE
  25. PROZAC [Concomitant]
     Active Substance: FLUOXETINE HYDROCHLORIDE
  26. TAXOL [Concomitant]
     Active Substance: PACLITAXEL
  27. TORADOL [Concomitant]
     Active Substance: KETOROLAC TROMETHAMINE
  28. SCOPOLAMINE [Concomitant]
     Active Substance: SCOPOLAMINE
     Route: 062
  29. TYLENOL [Concomitant]
     Active Substance: ACETAMINOPHEN
  30. VANCOMYCIN [Concomitant]
     Active Substance: VANCOMYCIN
  31. VENTOLIN HFA [Concomitant]
     Active Substance: ALBUTEROL SULFATE

REACTIONS (5)
  - Pelvic infection [Recovered/Resolved with Sequelae]
  - Anal fistula [Recovered/Resolved with Sequelae]
  - Ileostomy [Recovered/Resolved]
  - Hypokalaemia [Recovered/Resolved]
  - Wound infection [Recovered/Resolved]

NARRATIVE: CASE EVENT DATE: 20120409
